FAERS Safety Report 4698478-1 (Version None)
Quarter: 2005Q2

REPORT INFORMATION
  Report Type: 
  Country: None (occurrence: None)
  Receive Date: 20050621
  Receipt Date: 20050603
  Transmission Date: 20051028
  Serious: Yes (Other)
  Sender: FDA-Public Use
  Company Number: DE_050616072

PATIENT
  Age: 64 Year
  Sex: Female

DRUGS (2)
  1. GEMCITABINE HYDROCHLORIDE-IV (GEMCITABINE) [Suspect]
     Indication: OESOPHAGEAL CANCER METASTATIC
     Dosage: 1000 MG/M2
  2. DOCETAXEL [Concomitant]

REACTIONS (4)
  - MALIGNANT NEOPLASM PROGRESSION [None]
  - OESOPHAGEAL CANCER METASTATIC [None]
  - PNEUMONITIS [None]
  - RECALL PHENOMENON [None]
